FAERS Safety Report 6215993-X (Version None)
Quarter: 2009Q2

REPORT INFORMATION
  Report Type: 
  Country: None (occurrence: None)
  Receive Date: 20090603
  Receipt Date: 20090603
  Transmission Date: 20091009
  Serious: Yes (Other)
  Sender: FDA-Public Use
  Company Number: None

PATIENT
  Sex: Female
  Weight: 55.3388 kg

DRUGS (1)
  1. DOXYCYCLINE 100MG MUTUAL [Suspect]
     Indication: UPPER RESPIRATORY TRACT INFECTION
     Dosage: 100MG 2 A DAY ORALLY
     Route: 048
     Dates: start: 20090331, end: 20090411

REACTIONS (22)
  - ABDOMINAL PAIN UPPER [None]
  - ABNORMAL BEHAVIOUR [None]
  - ADVERSE DRUG REACTION [None]
  - AMNESIA [None]
  - BRONCHITIS [None]
  - CHEST DISCOMFORT [None]
  - CHEST PAIN [None]
  - CONFUSIONAL STATE [None]
  - DEPRESSION [None]
  - DYSARTHRIA [None]
  - DYSPNOEA [None]
  - EAR HAEMORRHAGE [None]
  - EPISTAXIS [None]
  - FEELING ABNORMAL [None]
  - FEELING HOT [None]
  - HEADACHE [None]
  - HYPERHIDROSIS [None]
  - HYPERSENSITIVITY [None]
  - MALAISE [None]
  - PNEUMONIA [None]
  - SWELLING [None]
  - URTICARIA [None]
